FAERS Safety Report 6399993-5 (Version None)
Quarter: 2009Q4

REPORT INFORMATION
  Report Type: 
  Country: None (occurrence: None)
  Receive Date: 20091014
  Receipt Date: 20091006
  Transmission Date: 20100525
  Serious: Yes (Hospitalization)
  Sender: FDA-Public Use
  Company Number: US-ELI_LILLY_AND_COMPANY-US200907003505

PATIENT
  Sex: Female
  Weight: 90.249 kg

DRUGS (8)
  1. BYETTA [Suspect]
     Indication: WEIGHT DECREASED
     Dosage: 5 UG, 2/D
     Route: 058
     Dates: start: 20070331, end: 20070703
  2. BYETTA [Suspect]
     Dosage: 10 UG, 2/D
     Route: 058
     Dates: start: 20070704
  3. AVINZA [Concomitant]
  4. MIRALAX [Concomitant]
  5. HYDROCODONE [Concomitant]
  6. CYMBALTA [Concomitant]
  7. KLONOPIN [Concomitant]
  8. LEVSIN [Concomitant]

REACTIONS (5)
  - DECREASED APPETITE [None]
  - EXCESSIVE SKIN [None]
  - INCREASED APPETITE [None]
  - OFF LABEL USE [None]
  - WEIGHT DECREASED [None]
